FAERS Safety Report 9520618 (Version 4)
Quarter: 2013Q4

REPORT INFORMATION
  Report Type: Spontaneous
  Country: JP (occurrence: JP)
  Receive Date: 20130913
  Receipt Date: 20131210
  Transmission Date: 20140711
  Serious: Yes (Death, Other)
  Sender: FDA-Public Use
  Company Number: JP-ROCHE-1269748

PATIENT
  Age: 51 Year
  Sex: Male
  Weight: 79 kg

DRUGS (6)
  1. XELODA [Suspect]
     Indication: COLON CANCER METASTATIC
     Dosage: IT IS ADMINISTER/ONE WEEKLY HOLIDAY MEDICINE FOR TWO WEEKS.
     Route: 048
     Dates: start: 20091120, end: 20100516
  2. AVASTIN [Suspect]
     Indication: COLON CANCER METASTATIC
     Route: 041
     Dates: start: 20091120, end: 2010
  3. ERBITUX [Suspect]
     Indication: COLON CANCER METASTATIC
     Route: 041
  4. ELPLAT [Concomitant]
     Indication: COLON CANCER METASTATIC
     Route: 041
     Dates: start: 20091120, end: 2010
  5. PYRIDOXAL PHOSPHATE [Concomitant]
     Route: 048
     Dates: start: 20091120
  6. DECADRON [Concomitant]
     Route: 065

REACTIONS (2)
  - Interstitial lung disease [Fatal]
  - Palmar-plantar erythrodysaesthesia syndrome [Not Recovered/Not Resolved]
